FAERS Safety Report 6883600-9 (Version None)
Quarter: 2010Q3

REPORT INFORMATION
  Report Type: 
  Country: None (occurrence: None)
  Receive Date: 20100729
  Receipt Date: 20100727
  Transmission Date: 20110219
  Serious: Yes (Life-Threatening)
  Sender: FDA-Public Use
  Company Number: JP-B.I. PHARMACEUTICALS,INC./RIDGEFIELD-2010-BP-06897NB

PATIENT
  Sex: Male
  Weight: 59.6 kg

DRUGS (3)
  1. SPIRIVA [Suspect]
     Indication: CHRONIC OBSTRUCTIVE PULMONARY DISEASE
     Dosage: 5 MCG
     Route: 055
     Dates: start: 20100518, end: 20100606
  2. LIPITOR [Concomitant]
     Dosage: 5 MG
     Route: 048
     Dates: start: 20080623
  3. SULTANOL [Concomitant]
     Dosage: 4 PUF
     Route: 055

REACTIONS (1)
  - ANAPHYLACTIC SHOCK [None]
